FAERS Safety Report 5511243-8 (Version None)
Quarter: 2007Q4

REPORT INFORMATION
  Report Type: 
  Country: None (occurrence: None)
  Receive Date: 20071109
  Receipt Date: 20071030
  Transmission Date: 20080405
  Serious: Yes (Other)
  Sender: FDA-Public Use
  Company Number: ZA-ROCHE-491531

PATIENT

DRUGS (2)
  1. ROACCUTANE [Suspect]
     Dosage: FREQUENCY REPORTED AS DAILY.
     Dates: start: 20070225, end: 20070402
  2. MICROGYNON [Concomitant]

REACTIONS (4)
  - CAESAREAN SECTION [None]
  - DRUG EXPOSURE DURING PREGNANCY [None]
  - LIVE BIRTH [None]
  - NO ADVERSE REACTION [None]
